FAERS Safety Report 7124258-3 (Version None)
Quarter: 2010Q4

REPORT INFORMATION
  Report Type: 
  Country: None (occurrence: None)
  Receive Date: 20101126
  Receipt Date: 20101115
  Transmission Date: 20110411
  Serious: Yes (Hospitalization, Other)
  Sender: FDA-Public Use
  Company Number: PHHY2010IE06320

PATIENT
  Sex: Male
  Weight: 89 kg

DRUGS (7)
  1. CLOZARIL [Suspect]
     Indication: SCHIZOPHRENIA
     Dosage: UNK
     Dates: start: 20020704
  2. CLOZARIL [Suspect]
     Dosage: 400 MG
     Dates: start: 20100127
  3. CLOZARIL [Suspect]
     Dosage: 400 MG
     Dates: start: 20100129
  4. CLOZARIL [Suspect]
     Route: 048
     Dates: start: 20100430
  5. ARIPIPRAZOLE [Concomitant]
     Indication: SCHIZOPHRENIA
     Dosage: 20 MG, QD
     Route: 048
     Dates: start: 20071101
  6. MIRTAZAPINE [Concomitant]
     Indication: DEPRESSION
     Dosage: 45 MG, QHS
     Route: 048
     Dates: start: 20000101
  7. ESCITALOPRAM [Concomitant]
     Indication: DEPRESSION
     Dosage: 20 MG, QD
     Route: 048
     Dates: start: 20030101

REACTIONS (16)
  - DECREASED APPETITE [None]
  - DELUSION [None]
  - FALL [None]
  - HAEMATOCRIT DECREASED [None]
  - HAEMOGLOBIN DECREASED [None]
  - HUMERUS FRACTURE [None]
  - LEUKOPENIA [None]
  - LYMPHOCYTE COUNT DECREASED [None]
  - MENTAL IMPAIRMENT [None]
  - MONOCYTE COUNT DECREASED [None]
  - NEUTROPENIA [None]
  - NEUTROPHIL COUNT DECREASED [None]
  - SUICIDE ATTEMPT [None]
  - THINKING ABNORMAL [None]
  - URINARY TRACT INFECTION [None]
  - WHITE BLOOD CELL COUNT DECREASED [None]
